FAERS Safety Report 9321297 (Version 1)
Quarter: 2013Q2

REPORT INFORMATION
  Report Type: Report from Study
  Country: DE (occurrence: DE)
  Receive Date: 20130531
  Receipt Date: 20130531
  Transmission Date: 20140414
  Serious: Yes (Hospitalization)
  Sender: FDA-Public Use
  Company Number: DE-TEVA-407670ISR

PATIENT
  Age: 74 Year
  Sex: Female
  Weight: 47 kg

DRUGS (5)
  1. CARBOPLATIN [Suspect]
     Indication: OVARIAN CANCER
     Dosage: 403 UNKNOWN DAILY; DATE OF LAST DOSE ADMINISTRATION BEFORE SAE:29-APR-2013 (403 UNIT NOT REPORTED)
     Route: 042
     Dates: start: 20130205
  2. CARBOPLATIN [Suspect]
     Dosage: 398 MILLIGRAM DAILY; DATE OF LAST DOSE ADMINISTRATION BEFORE SAE: 05-APR-2013
     Route: 042
     Dates: start: 20130314
  3. PACLITAXEL [Suspect]
     Indication: OVARIAN CANCER
     Dosage: 221 UNKNOWN DAILY; DATE OF LAST DOSE ADMINISTRATION BEFORE SAE:29-APR-2013 (221 UNIT NOT REPORTED)
     Route: 042
     Dates: start: 20130205
  4. PACLITAXEL [Suspect]
     Dosage: 259 MILLIGRAM DAILY; DATE OF LAST DOSE ADMINISTRATION BEFORE SAE:05-APR-2013 (259 MG)
     Route: 042
     Dates: start: 20130314
  5. BEVACIZUMAB [Suspect]
     Indication: OVARIAN CANCER
     Dosage: 855 UNKNOWN DAILY; DATE OF LAST DOSE ADMINISTRATION BEFORE SAE:29-APR-2013 (855 UNIT NOT REPORTED)
     Route: 042
     Dates: start: 20130312

REACTIONS (13)
  - General physical health deterioration [Not Recovered/Not Resolved]
  - Waist circumference increased [Unknown]
  - Fatigue [Unknown]
  - Back pain [Unknown]
  - Oedema peripheral [Unknown]
  - Nausea [Unknown]
  - Constipation [Unknown]
  - Dehydration [Unknown]
  - Abdominal pain upper [Unknown]
  - Ascites [Unknown]
  - Asthenia [Unknown]
  - Gastrointestinal disorder [Unknown]
  - Abdominal pain [Unknown]
